FAERS Safety Report 9343740 (Version 1)
Quarter: 2013Q2

REPORT INFORMATION
  Report Type: Spontaneous
  Country: US (occurrence: US)
  Receive Date: 20130612
  Receipt Date: 20130612
  Transmission Date: 20140414
  Serious: No
  Sender: FDA-Public Use
  Company Number: US-BAYER-2013-068075

PATIENT
  Age: 58 Year
  Sex: Male
  Weight: 84.81 kg

DRUGS (1)
  1. ALEVE GELCAPS [Suspect]
     Indication: ARTHRITIS
     Dosage: 2 DF, ONCE
     Route: 048
     Dates: start: 201305, end: 201305

REACTIONS (4)
  - Palpitations [Recovered/Resolved]
  - Urticaria [Recovered/Resolved]
  - Generalised erythema [None]
  - Pruritus [Recovered/Resolved]
